FAERS Safety Report 18120871 (Version 2)
Quarter: 2020Q3

REPORT INFORMATION
  Report Type: Spontaneous
  Country: US (occurrence: US)
  Receive Date: 20200806
  Receipt Date: 20200901
  Transmission Date: 20201103
  Serious: Yes (Death, Other)
  Sender: FDA-Public Use
  Company Number: US-GILEAD-2020-0489059

PATIENT
  Age: 60 Year
  Sex: Female
  Weight: 100 kg

DRUGS (18)
  1. PRECEDEX [Concomitant]
     Active Substance: DEXMEDETOMIDINE HYDROCHLORIDE
     Route: 042
  2. NYSTATIN. [Concomitant]
     Active Substance: NYSTATIN
     Dosage: 100,000 UNITS
     Route: 061
     Dates: start: 20200625, end: 20200731
  3. SODIUM BICARBONATE. [Concomitant]
     Active Substance: SODIUM BICARBONATE
     Dosage: 1300 MG, Q6H
     Route: 048
     Dates: start: 20200728, end: 20200731
  4. VORICONAZOL [Concomitant]
     Active Substance: VORICONAZOLE
     Dosage: 400 MG, BID
     Route: 042
     Dates: start: 20200722, end: 20200731
  5. KETAMINE [Concomitant]
     Active Substance: KETAMINE
     Route: 042
  6. ASPIRIN (E.C.) [Concomitant]
     Active Substance: ASPIRIN
     Dosage: 81 MG, QD
     Route: 048
     Dates: start: 20200627, end: 20200731
  7. CEFAZOLIN [Concomitant]
     Active Substance: CEFAZOLIN
     Dosage: 1 G, BID
     Route: 042
     Dates: start: 20200728, end: 20200731
  8. PROTONIX [OMEPRAZOLE] [Concomitant]
     Active Substance: OMEPRAZOLE
     Dosage: 40 MG, BID
     Route: 042
     Dates: start: 20200622, end: 20200731
  9. FENTANYL. [Concomitant]
     Active Substance: FENTANYL
     Route: 042
  10. MIDAZOLAM. [Concomitant]
     Active Substance: MIDAZOLAM
     Route: 042
  11. VASOPRESSIN. [Concomitant]
     Active Substance: VASOPRESSIN
     Route: 042
  12. PROPOFOL. [Concomitant]
     Active Substance: PROPOFOL
     Route: 042
  13. REMDESIVIR. [Suspect]
     Active Substance: REMDESIVIR
     Indication: COVID-19
     Dosage: 100 MG
     Route: 042
     Dates: start: 20200613, end: 20200623
  14. INSULIN [Concomitant]
     Active Substance: INSULIN NOS
     Route: 042
  15. NOREPINEPHRINE. [Concomitant]
     Active Substance: NOREPINEPHRINE
     Route: 042
  16. HEPARIN [Concomitant]
     Active Substance: HEPARIN SODIUM
     Dosage: 5000 UNITS
     Route: 058
     Dates: start: 20200729, end: 20200731
  17. METHYLPREDNISOLONE. [Concomitant]
     Active Substance: METHYLPREDNISOLONE
     Dosage: 10 MG, QD
     Route: 042
     Dates: start: 20200730, end: 20200731
  18. QUETIAPINE. [Concomitant]
     Active Substance: QUETIAPINE
     Dosage: 400 MG, BID
     Route: 048
     Dates: start: 20200722, end: 20200731

REACTIONS (4)
  - Renal failure [Unknown]
  - COVID-19 [Fatal]
  - Acute kidney injury [Unknown]
  - Acute respiratory distress syndrome [Unknown]

NARRATIVE: CASE EVENT DATE: 20200727
